FAERS Safety Report 7543084-4 (Version None)
Quarter: 2011Q2

REPORT INFORMATION
  Report Type: 
  Country: None (occurrence: None)
  Receive Date: 20110613
  Receipt Date: 20110607
  Transmission Date: 20111010
  Serious: Yes (Death, Hospitalization)
  Sender: FDA-Public Use
  Company Number: PHHY2011BR49697

PATIENT
  Sex: Female

DRUGS (1)
  1. EXELON [Suspect]
     Dosage: 1 DF DAILY
     Route: 062

REACTIONS (7)
  - RENAL FAILURE [None]
  - MULTI-ORGAN FAILURE [None]
  - BACTERIAL TOXAEMIA [None]
  - RESPIRATORY ARREST [None]
  - BLOOD CREATINE INCREASED [None]
  - ANURIA [None]
  - CEREBROVASCULAR ACCIDENT [None]
